FAERS Safety Report 8089386-7 (Version None)
Quarter: 2012Q1

REPORT INFORMATION
  Report Type: 
  Country: None (occurrence: None)
  Receive Date: 20120128
  Receipt Date: 20110711
  Transmission Date: 20120608
  Serious: No
  Sender: FDA-Public Use
  Company Number: US-ABBOTT-11P-163-0838291-00

PATIENT
  Sex: Male

DRUGS (8)
  1. HUMIRA [Suspect]
     Indication: PSORIASIS
     Dosage: STARTING DOSE
     Dates: start: 20110501, end: 20110501
  2. BUPROPION HYDROCHLORIDE [Concomitant]
     Indication: PRODUCT USED FOR UNKNOWN INDICATION
  3. ELIDIL CREAM [Concomitant]
     Indication: ECZEMA
  4. JANUMET [Concomitant]
     Indication: TYPE 2 DIABETES MELLITUS
  5. HUMIRA [Suspect]
  6. LISINOPRIL [Concomitant]
     Indication: HYPERTENSION
  7. ZOCOR [Concomitant]
     Indication: PRODUCT USED FOR UNKNOWN INDICATION
  8. GLYBURIDE [Concomitant]
     Indication: TYPE 2 DIABETES MELLITUS

REACTIONS (1)
  - PLATELET COUNT DECREASED [None]
